FAERS Safety Report 6072554-3 (Version None)
Quarter: 2009Q1

REPORT INFORMATION
  Report Type: 
  Country: None (occurrence: None)
  Receive Date: 20090210
  Receipt Date: 20090205
  Transmission Date: 20090719
  Serious: Yes (Death, Hospitalization)
  Sender: FDA-Public Use
  Company Number: FR-ABBOTT-09P-056-0500153-00

PATIENT
  Sex: Male

DRUGS (3)
  1. ZECLAR [Suspect]
     Indication: BRONCHITIS
     Route: 048
     Dates: start: 20090101, end: 20090102
  2. DIGOXIN [Concomitant]
     Indication: DRUG USE FOR UNKNOWN INDICATION
  3. FUROSEMID [Concomitant]
     Indication: DRUG USE FOR UNKNOWN INDICATION

REACTIONS (4)
  - COUGH [None]
  - DYSPNOEA [None]
  - HENOCH-SCHONLEIN PURPURA [None]
  - SUDDEN DEATH [None]
